FAERS Safety Report 16974706 (Version 1)
Quarter: 2019Q4

REPORT INFORMATION
  Report Type: Spontaneous
  Country: US (occurrence: US)
  Receive Date: 20191030
  Receipt Date: 20191030
  Transmission Date: 20200122
  Serious: Yes (Hospitalization)
  Sender: FDA-Public Use
  Company Number: US-CELLTRION INC.-2019US023456

PATIENT

DRUGS (8)
  1. INFLIXIMAB (UNKNOWN) [Suspect]
     Active Substance: INFLIXIMAB
     Indication: CROHN^S DISEASE
     Dosage: AFTER STOPPING ADALIMUMAB THERAPY
  2. PREDNISONE. [Concomitant]
     Active Substance: PREDNISONE
     Dosage: 6-WEEK TAPERING COURSE
  3. PREGABALIN. [Concomitant]
     Active Substance: PREGABALIN
  4. ADALIMUMAB [Suspect]
     Active Substance: ADALIMUMAB
     Indication: CROHN^S DISEASE
     Dosage: AFTER MEZALAZINE WAS STOPPED
  5. SUCRALFATE. [Concomitant]
     Active Substance: SUCRALFATE
  6. PANTOPRAZOLE [Concomitant]
     Active Substance: PANTOPRAZOLE
  7. ADALIMUMAB [Suspect]
     Active Substance: ADALIMUMAB
     Dosage: FREQUENCY INCREASED
  8. PREDNISONE. [Concomitant]
     Active Substance: PREDNISONE
     Indication: CROHN^S DISEASE
     Dosage: ALONG WITH INCREASED ADALIMUMAB INJECTION

REACTIONS (2)
  - Tuberculosis gastrointestinal [Unknown]
  - Tuberculosis [Unknown]
